FAERS Safety Report 4410630-9 (Version None)
Quarter: 2004Q3

REPORT INFORMATION
  Report Type: 
  Country: None (occurrence: None)
  Receive Date: 20040726
  Receipt Date: 20040713
  Transmission Date: 20050211
  Serious: Yes (Death, Hospitalization)
  Sender: FDA-Public Use
  Company Number: 04P-066-0264652-00

PATIENT
  Age: 75 Year
  Sex: Male

DRUGS (12)
  1. HUMIRA [Suspect]
     Indication: RHEUMATOID ARTHRITIS
     Dosage: 40 MG, 1 IN 2 WK, SUBCUTANEOUS
     Route: 058
     Dates: start: 20040326, end: 20040517
  2. ISOSORBIDE MONONITRATE [Concomitant]
  3. DIPYRIDAMOLE [Concomitant]
  4. NIFEDIPINE [Concomitant]
  5. GLYBURIDE [Concomitant]
  6. IPATROPIUM BROMIDE [Concomitant]
  7. LONALGAL [Concomitant]
  8. DONEPEZIL HCL [Concomitant]
  9. SINEMET [Concomitant]
  10. OMEPRAZOLE [Concomitant]
  11. PREDNISOLONE [Concomitant]
  12. ONE ALPHA [Concomitant]

REACTIONS (5)
  - CARDIAC ARREST [None]
  - CHRONIC RESPIRATORY FAILURE [None]
  - CORONARY ARTERY DISEASE [None]
  - HYPERTENSION [None]
  - PULMONARY OEDEMA [None]
